FAERS Safety Report 6717609-2 (Version None)
Quarter: 2010Q2

REPORT INFORMATION
  Report Type: 
  Country: None (occurrence: None)
  Receive Date: 20100510
  Receipt Date: 20100503
  Transmission Date: 20101027
  Serious: Yes (Hospitalization)
  Sender: FDA-Public Use
  Company Number: US-JNJFOC-20100500983

PATIENT
  Sex: Female
  Weight: 83.46 kg

DRUGS (7)
  1. DURAGESIC-100 [Suspect]
     Indication: ARTHRALGIA
     Route: 062
  2. DURAGESIC-100 [Suspect]
     Route: 062
  3. DURAGESIC-100 [Suspect]
     Route: 062
  4. DURAGESIC-100 [Suspect]
     Route: 062
  5. FENTANYL CITRATE [Suspect]
     Indication: ARTHRALGIA
     Dosage: NDC 0781-7111-55
     Route: 062
  6. FENTANYL CITRATE [Suspect]
     Dosage: NDC 0781-7241-55
     Route: 062
  7. MANY OTHER UNSPECIFIED MEDICATIONS [Concomitant]
     Route: 065

REACTIONS (2)
  - ARTHRITIS [None]
  - CARDIAC DISORDER [None]
